FAERS Safety Report 23421159 (Version 3)
Quarter: 2025Q1

REPORT INFORMATION
  Report Type: Report from Study
  Country: US (occurrence: US)
  Receive Date: 20240119
  Receipt Date: 20250115
  Transmission Date: 20250409
  Serious: Yes (Hospitalization)
  Sender: HRA PHARMA
  Company Number: US-ORG100014127-2023001023

PATIENT
  Age: 75 Year
  Sex: Female

DRUGS (19)
  1. LYSODREN [Suspect]
     Active Substance: MITOTANE
     Indication: Adrenal gland cancer
     Dosage: 2 TABLETS FOUR TIMES DAILY
     Route: 048
     Dates: start: 20230818
  2. LYSODREN [Suspect]
     Active Substance: MITOTANE
     Indication: Adrenal gland cancer
     Dosage: 3 TABLETS THREE TIMES DAILY
     Route: 048
     Dates: end: 20231215
  3. LYSODREN [Suspect]
     Active Substance: MITOTANE
     Indication: Adrenal gland cancer
     Route: 048
     Dates: start: 20231220
  4. acetamin tablet 500mg [Concomitant]
     Indication: Product used for unknown indication
  5. Atorvastatin tablet 40mg [Concomitant]
     Indication: Product used for unknown indication
  6. bisoprolol fumarate tablet 5mg [Concomitant]
     Indication: Product used for unknown indication
  7. Dexamethason tablet 1.5mg [Concomitant]
     Indication: Product used for unknown indication
  8. Ferrous sulfate tablet 325mg [Concomitant]
     Indication: Product used for unknown indication
  9. hydrochlorothiazide tablet 50mg [Concomitant]
     Indication: Product used for unknown indication
  10. LORAZEPAM [Concomitant]
     Active Substance: LORAZEPAM
     Indication: Product used for unknown indication
  11. Losartan potassium tablet 50mg [Concomitant]
     Indication: Product used for unknown indication
  12. Morphine sulfate tablet 15mg [Concomitant]
     Indication: Product used for unknown indication
  13. Ondansetron tablet 4mg [Concomitant]
     Indication: Product used for unknown indication
  14. Multi-vitamins tablet [Concomitant]
     Indication: Product used for unknown indication
  15. Potassium powder chloride [Concomitant]
     Indication: Product used for unknown indication
  16. Pradaxa capsule 110mg [Concomitant]
     Indication: Product used for unknown indication
  17. SENNA/DSS  Tablet 8.6-50mg [Concomitant]
     Indication: Product used for unknown indication
  18. SERTRALINE [Concomitant]
     Active Substance: SERTRALINE HYDROCHLORIDE
     Indication: Product used for unknown indication
  19. Vitamin D3 Tablet 5000 unit [Concomitant]
     Indication: Product used for unknown indication

REACTIONS (4)
  - Balance disorder [Recovered/Resolved]
  - Dizziness [Unknown]
  - Fatigue [Unknown]
  - Vomiting [Not Recovered/Not Resolved]

NARRATIVE: CASE EVENT DATE: 20230101
